FAERS Safety Report 20458538 (Version 1)
Quarter: 2022Q1

REPORT INFORMATION
  Report Type: Spontaneous
  Country: ES (occurrence: ES)
  Receive Date: 20220211
  Receipt Date: 20220211
  Transmission Date: 20220423
  Serious: Yes (Death, Hospitalization)
  Sender: FDA-Public Use
  Company Number: None

PATIENT
  Age: 67 Year
  Sex: Female

DRUGS (4)
  1. KEPPRA [Suspect]
     Active Substance: LEVETIRACETAM
     Indication: Meningioma
     Dosage: 500 MILLIGRAM, 2X/DAY (BID)
     Route: 048
     Dates: start: 20201006, end: 20201008
  2. OPDIVO [Suspect]
     Active Substance: NIVOLUMAB
     Indication: Malignant melanoma
     Dosage: 1 SESSION EVERY 3 WEEKS
     Route: 042
     Dates: start: 20200911, end: 20201023
  3. YERVOY [Suspect]
     Active Substance: IPILIMUMAB
     Indication: Malignant melanoma
     Dosage: 1 SESSION EVERY 3 WEEKS
     Route: 042
     Dates: start: 20200911, end: 20201023
  4. DEXAMETHASONE [Concomitant]
     Active Substance: DEXAMETHASONE
     Indication: Meningioma
     Dosage: 4 MILLIGRAM, 2X/DAY (BID)
     Route: 048
     Dates: start: 20201006, end: 20201017

REACTIONS (1)
  - SJS-TEN overlap [Fatal]

NARRATIVE: CASE EVENT DATE: 20201105
